FAERS Safety Report 9248289 (Version 2)
Quarter: 2014Q1

REPORT INFORMATION
  Report Type: Spontaneous
  Country: US (occurrence: US)
  Receive Date: 20130423
  Receipt Date: 20140103
  Transmission Date: 20141002
  Serious: Yes (Death)
  Sender: FDA-Public Use
  Company Number: US-ASTRAZENECA-2013SE27307

PATIENT
  Age: 58 Year
  Sex: Female
  Weight: 56.7 kg

DRUGS (12)
  1. NEXIUM [Suspect]
     Indication: ULCER
     Route: 048
     Dates: start: 2000, end: 2011
  2. NEXIUM [Suspect]
     Indication: GASTROOESOPHAGEAL REFLUX DISEASE
     Route: 048
     Dates: start: 2000, end: 2011
  3. NEXIUM [Suspect]
     Indication: ULCER
     Route: 048
     Dates: start: 20090506
  4. NEXIUM [Suspect]
     Indication: GASTROOESOPHAGEAL REFLUX DISEASE
     Route: 048
     Dates: start: 20090506
  5. DEXILANT [Concomitant]
  6. OXYCODONE [Concomitant]
     Indication: PAIN
     Dates: start: 20030411
  7. LIPITOR [Concomitant]
     Indication: BLOOD CHOLESTEROL INCREASED
  8. CRESTOR [Concomitant]
     Indication: BLOOD CHOLESTEROL INCREASED
  9. MILK OF MAGNESIA [Concomitant]
     Indication: CONSTIPATION
     Dosage: AS NEEDED
  10. PERCOCET [Concomitant]
     Dosage: 10/650, ONE TABLET TWO TIMES A DAY
     Dates: start: 20030609
  11. MAXALT [Concomitant]
     Dates: start: 20030711
  12. DESOXYN [Concomitant]
     Dates: start: 20031104

REACTIONS (16)
  - Chronic obstructive pulmonary disease [Fatal]
  - Myocardial infarction [Fatal]
  - Pulmonary embolism [Fatal]
  - Kyphoscoliosis [Fatal]
  - Osteoporosis [Unknown]
  - Spinal fracture [Unknown]
  - Bone disorder [Unknown]
  - Hand fracture [Unknown]
  - Scoliosis [Unknown]
  - Crohn^s disease [Unknown]
  - Rib fracture [Unknown]
  - Foot fracture [Unknown]
  - Calcium deficiency [Unknown]
  - Arthritis [Unknown]
  - Bone loss [Unknown]
  - Depression [Unknown]
